FAERS Safety Report 4693649-2 (Version None)
Quarter: 2005Q2

REPORT INFORMATION
  Report Type: 
  Country: None (occurrence: None)
  Receive Date: 20050617
  Receipt Date: 20050607
  Transmission Date: 20051028
  Serious: Yes (Hospitalization)
  Sender: FDA-Public Use
  Company Number: 2005UW08756

PATIENT
  Age: 58 Year
  Sex: Male
  Weight: 97.5 kg

DRUGS (3)
  1. CRESTOR [Suspect]
     Indication: BLOOD CHOLESTEROL INCREASED
     Route: 048
     Dates: start: 20050201, end: 20050501
  2. PRAVACHOL [Concomitant]
     Indication: BLOOD CHOLESTEROL INCREASED
     Route: 048
     Dates: start: 20030101, end: 20050201
  3. NEOSPAN [Concomitant]

REACTIONS (3)
  - MUSCLE HAEMORRHAGE [None]
  - MYALGIA [None]
  - OEDEMA PERIPHERAL [None]
